FAERS Safety Report 15961053 (Version 1)
Quarter: 2019Q1

REPORT INFORMATION
  Report Type: Spontaneous
  Country: US (occurrence: US)
  Receive Date: 20190214
  Receipt Date: 20190214
  Transmission Date: 20190417
  Serious: No
  Sender: FDA-Public Use
  Company Number: US-PFIZER INC-2019012328

PATIENT
  Age: 51 Year
  Sex: Male
  Weight: 91.2 kg

DRUGS (2)
  1. VFEND [Suspect]
     Active Substance: VORICONAZOLE
     Indication: HISTOPLASMOSIS
     Dosage: 200 MG, 2X/DAY
     Route: 048
     Dates: start: 20181219
  2. VFEND [Suspect]
     Active Substance: VORICONAZOLE
     Dosage: 100 MG, DAILY(50 MG TABLET - TAKE TWO TABLETS BY MOUTH DAILY)
     Route: 048

REACTIONS (2)
  - Drug level below therapeutic [Unknown]
  - Product use in unapproved indication [Unknown]

NARRATIVE: CASE EVENT DATE: 20181219
